FAERS Safety Report 10935205 (Version 2)
Quarter: 2015Q2

REPORT INFORMATION
  Report Type: Spontaneous
  Country: US (occurrence: US)
  Receive Date: 20150320
  Receipt Date: 20150526
  Transmission Date: 20150821
  Serious: No
  Sender: FDA-Public Use
  Company Number: US-JNJFOC-20140415554

PATIENT
  Age: 70 Year
  Sex: Female

DRUGS (2)
  1. TERCONAZOLE. [Suspect]
     Active Substance: TERCONAZOLE
     Indication: VULVOVAGINAL CANDIDIASIS
     Route: 067
     Dates: start: 20140414
  2. LEVOTHYROXINE [Concomitant]
     Active Substance: LEVOTHYROXINE
     Route: 065
     Dates: start: 2013

REACTIONS (2)
  - Vulvovaginal burning sensation [Unknown]
  - Vulvovaginal pruritus [Unknown]

NARRATIVE: CASE EVENT DATE: 20140414
